FAERS Safety Report 10656601 (Version 2)
Quarter: 2015Q1

REPORT INFORMATION
  Report Type: Report from Study
  Country: US (occurrence: US)
  Receive Date: 20141216
  Receipt Date: 20150218
  Transmission Date: 20150720
  Serious: Yes (Hospitalization)
  Sender: FDA-Public Use
  Company Number: PHEH2014US024007

PATIENT
  Sex: Male

DRUGS (2)
  1. CLOZARIL [Suspect]
     Active Substance: CLOZAPINE
     Indication: PRODUCT USED FOR UNKNOWN INDICATION
     Dosage: 700 MG, QD (400 MG/AT BEDTIME AND 100 MG/ THREE TIMES A DAY)
     Route: 065
  2. CLOZARIL [Suspect]
     Active Substance: CLOZAPINE
     Dosage: 400 MG, QD (AT BED TIME)
     Route: 065

REACTIONS (8)
  - Decreased appetite [Unknown]
  - Oesophagitis [Unknown]
  - Vomiting [Unknown]
  - Self-induced vomiting [Unknown]
  - Weight decreased [Unknown]
  - Nausea [Unknown]
  - Aphagia [Unknown]
  - Pneumonia aspiration [Unknown]
